FAERS Safety Report 20257515 (Version 1)
Quarter: 2021Q4

REPORT INFORMATION
  Report Type: Spontaneous
  Country: PL (occurrence: None)
  Receive Date: 20211230
  Receipt Date: 20211230
  Transmission Date: 20220303
  Serious: Yes (Hospitalization, Other)
  Sender: FDA-Public Use
  Company Number: PL-GLAXOSMITHKLINE-PL2021EME244207

PATIENT
  Age: 83 Year
  Sex: Female
  Weight: 91 kg

DRUGS (114)
  1. ACETAMINOPHEN [Suspect]
     Active Substance: ACETAMINOPHEN
     Indication: Product used for unknown indication
     Dosage: 500 MG, BID/1-0-1
     Route: 065
  2. ACETAMINOPHEN [Suspect]
     Active Substance: ACETAMINOPHEN
     Dosage: 500 MG, QD/0-0-1
     Route: 065
  3. ACETAMINOPHEN [Suspect]
     Active Substance: ACETAMINOPHEN
     Dosage: 0-0-1
     Route: 065
  4. ACETAMINOPHEN [Suspect]
     Active Substance: ACETAMINOPHEN
     Dosage: 1-0-1
     Route: 065
  5. ACETAMINOPHEN [Suspect]
     Active Substance: ACETAMINOPHEN
     Dosage: 0-0-1
     Route: 065
  6. ACETAMINOPHEN [Suspect]
     Active Substance: ACETAMINOPHEN
     Dosage: 500 MG, DAILY (0-0-1)
     Route: 065
  7. RAMIPRIL [Suspect]
     Active Substance: RAMIPRIL
     Indication: Cardiac failure
     Dosage: 5 MG, QD/1-0-0
     Route: 065
  8. RAMIPRIL [Suspect]
     Active Substance: RAMIPRIL
     Indication: Product used for unknown indication
     Dosage: 1-0-0
     Route: 065
  9. RAMIPRIL [Suspect]
     Active Substance: RAMIPRIL
     Dosage: 1-0-0
     Route: 065
  10. RAMIPRIL [Suspect]
     Active Substance: RAMIPRIL
     Dosage: 5 MG, DAILY (DOSING 1-0-0)
     Route: 065
  11. HYDROXYZINE HYDROCHLORIDE [Suspect]
     Active Substance: HYDROXYZINE HYDROCHLORIDE
     Indication: Product used for unknown indication
     Dosage: 2 DF, QD/25 MG, AD HOC, USUALLY
     Route: 065
  12. HYDROXYZINE HYDROCHLORIDE [Suspect]
     Active Substance: HYDROXYZINE HYDROCHLORIDE
     Dosage: AS NECASSARY, USUALLY 2 X /24 H
     Route: 065
  13. HYDROXYZINE HYDROCHLORIDE [Suspect]
     Active Substance: HYDROXYZINE HYDROCHLORIDE
     Dosage: TWO TABLETS PER 24 HOURS
     Route: 065
  14. HYDROXYZINE HYDROCHLORIDE [Suspect]
     Active Substance: HYDROXYZINE HYDROCHLORIDE
     Dosage: 25 MG, AS NEEDED, AV. TWICE DAILY), STRENGTH 25 MG
     Route: 065
  15. HYDROXYZINE HYDROCHLORIDE [Suspect]
     Active Substance: HYDROXYZINE HYDROCHLORIDE
     Dosage: 40 MG, QD/1-0-0/25 MG, AD HOC, USUALLY
     Route: 065
  16. SPIRONOLACTONE [Suspect]
     Active Substance: SPIRONOLACTONE
     Indication: Product used for unknown indication
     Dosage: 100 MG, QD/0-1-0
     Route: 065
  17. SPIRONOLACTONE [Suspect]
     Active Substance: SPIRONOLACTONE
     Dosage: 0-1-0
     Route: 065
  18. SPIRONOLACTONE [Suspect]
     Active Substance: SPIRONOLACTONE
     Dosage: 0-1-0
     Route: 065
  19. SPIRONOLACTONE [Suspect]
     Active Substance: SPIRONOLACTONE
     Dosage: 100 MG, DAILY (DOSING 0-1-0)
     Route: 065
  20. BETAHISTINE [Suspect]
     Active Substance: BETAHISTINE
     Indication: Product used for unknown indication
     Dosage: 24 MG, QD/0-1-0
     Route: 065
  21. BETAHISTINE [Suspect]
     Active Substance: BETAHISTINE
     Dosage: 0-1-0
     Route: 065
  22. BETAHISTINE [Suspect]
     Active Substance: BETAHISTINE
     Dosage: 0-1-0
     Route: 065
  23. BETAHISTINE [Suspect]
     Active Substance: BETAHISTINE
     Dosage: 24 MG, DAILY (0-1-0)
     Route: 065
  24. OMEPRAZOLE [Suspect]
     Active Substance: OMEPRAZOLE
     Indication: Product used for unknown indication
     Dosage: 20 MG, BID/1-1-0
     Route: 065
  25. OMEPRAZOLE [Suspect]
     Active Substance: OMEPRAZOLE
     Dosage: 1-1-0
     Route: 065
  26. OMEPRAZOLE [Suspect]
     Active Substance: OMEPRAZOLE
     Dosage: 1-1-0
     Route: 065
  27. GLICLAZIDE [Suspect]
     Active Substance: GLICLAZIDE
     Indication: Product used for unknown indication
     Dosage: 60 MG, TID/1-1-1
     Route: 065
  28. GLICLAZIDE [Suspect]
     Active Substance: GLICLAZIDE
     Dosage: 1-1-1
     Route: 065
  29. GLICLAZIDE [Suspect]
     Active Substance: GLICLAZIDE
     Dosage: 1-1-1
     Route: 065
  30. ALPRAZOLAM [Suspect]
     Active Substance: ALPRAZOLAM
     Indication: Product used for unknown indication
     Dosage: 2 DF, QD/0,5 MG, AD HOC, USUALLY
     Route: 065
  31. ALPRAZOLAM [Suspect]
     Active Substance: ALPRAZOLAM
     Dosage: AS NECESSARY, USUALLY 2 X / 24 H
     Route: 065
  32. ALPRAZOLAM [Suspect]
     Active Substance: ALPRAZOLAM
     Dosage: TWO TABLETS PER 24 HOURS
     Route: 065
  33. ALPRAZOLAM [Suspect]
     Active Substance: ALPRAZOLAM
     Dosage: 0.5 MG, BID (AS NEEDED, AV)
     Route: 065
  34. ISOSORBIDE MONONITRATE [Suspect]
     Active Substance: ISOSORBIDE MONONITRATE
     Indication: Product used for unknown indication
     Dosage: UNK (50 MG, AD HOC, USUALLY,1-2 TABLETS A DAY)
     Route: 065
  35. ISOSORBIDE MONONITRATE [Suspect]
     Active Substance: ISOSORBIDE MONONITRATE
     Dosage: AS NECESSARY, USUALLY 1-2 X / 24 H
     Route: 065
  36. ISOSORBIDE MONONITRATE [Suspect]
     Active Substance: ISOSORBIDE MONONITRATE
     Dosage: 1-2 TABLETS PER 24H
     Route: 065
  37. ISOSORBIDE MONONITRATE [Suspect]
     Active Substance: ISOSORBIDE MONONITRATE
     Dosage: 50 MG, BID (AS NEEDED, AV. ONCE/TWICE DAILY
     Route: 065
  38. LEVOTHYROXINE [Suspect]
     Active Substance: LEVOTHYROXINE
     Indication: Product used for unknown indication
     Dosage: 100 UG, QD/1-0-0
     Route: 065
  39. LEVOTHYROXINE [Suspect]
     Active Substance: LEVOTHYROXINE
     Dosage: 100 UG, QD/1-0-0
     Route: 065
  40. LEVOTHYROXINE [Suspect]
     Active Substance: LEVOTHYROXINE
     Dosage: 1-0-0
     Route: 065
  41. LEVOTHYROXINE [Suspect]
     Active Substance: LEVOTHYROXINE
     Dosage: 1-0-0
     Route: 065
  42. LEVOTHYROXINE [Suspect]
     Active Substance: LEVOTHYROXINE
     Dosage: 100 MCG, DAILY (1-0-0)
     Route: 065
  43. METOCLOPRAMIDE [Suspect]
     Active Substance: METOCLOPRAMIDE
     Indication: Product used for unknown indication
     Dosage: 2 DF
     Route: 065
  44. METOCLOPRAMIDE [Suspect]
     Active Substance: METOCLOPRAMIDE
     Indication: Constipation
     Dosage: AS NECESSARY 2 TABLETS IN CASE OF CONSTIPATION FOR MENY MONTHS
     Route: 065
  45. METOCLOPRAMIDE [Suspect]
     Active Substance: METOCLOPRAMIDE
     Route: 065
  46. METOCLOPRAMIDE [Suspect]
     Active Substance: METOCLOPRAMIDE
     Dosage: 10 MG, UNK (AS NEEDED)
     Route: 065
  47. METOCLOPRAMIDE [Suspect]
     Active Substance: METOCLOPRAMIDE
     Dosage: 2 DF
     Route: 065
  48. ALBUTEROL [Suspect]
     Active Substance: ALBUTEROL
     Indication: Product used for unknown indication
     Dosage: 100 UG/AD HOC
     Route: 065
  49. ALBUTEROL [Suspect]
     Active Substance: ALBUTEROL
     Dosage: AS NECESSARY
     Route: 065
  50. ALBUTEROL [Suspect]
     Active Substance: ALBUTEROL
  51. ALBUTEROL [Suspect]
     Active Substance: ALBUTEROL
     Dosage: 100 MCG, UNK (AS NEEDED)
     Route: 065
  52. METOPROLOL [Suspect]
     Active Substance: METOPROLOL
     Indication: Hypertension
     Dosage: 50 MG, BID/1-0-1/2
     Route: 065
  53. METOPROLOL [Suspect]
     Active Substance: METOPROLOL
     Indication: Product used for unknown indication
     Dosage: 50 MG, BID
     Route: 065
  54. METOPROLOL [Suspect]
     Active Substance: METOPROLOL
     Dosage: 50 MG, BID/1-0-1
     Route: 065
  55. METOPROLOL [Suspect]
     Active Substance: METOPROLOL
     Dosage: 1-0-1/2
     Route: 065
  56. METOPROLOL [Suspect]
     Active Substance: METOPROLOL
     Dosage: 1-0-1
     Route: 065
  57. METOPROLOL [Suspect]
     Active Substance: METOPROLOL
     Dosage: 50 MG, BID (DOSING 1-0-1)
     Route: 065
  58. METOPROLOL [Suspect]
     Active Substance: METOPROLOL
     Dosage: 50 MG, BID/1-0-1
     Route: 065
  59. METOPROLOL [Suspect]
     Active Substance: METOPROLOL
     Dosage: 50 MG, BID/1-0-1/2
     Route: 065
  60. TRAMADOL [Suspect]
     Active Substance: TRAMADOL
     Indication: Pain
     Dosage: 100 MG/2 TABLETS
     Route: 065
  61. TRAMADOL [Suspect]
     Active Substance: TRAMADOL
     Indication: Product used for unknown indication
     Dosage: 50 MG
     Route: 065
  62. TRAMADOL [Suspect]
     Active Substance: TRAMADOL
     Dosage: AS NECESSARY 2 TABLETS
     Route: 065
  63. TRAMADOL [Suspect]
     Active Substance: TRAMADOL
     Dosage: 100 MG 2 TABLETS AS RELIEF MEDICATION
     Route: 065
  64. TRAMADOL [Suspect]
     Active Substance: TRAMADOL
     Dosage: 50 MG AS RELIEF MEDICATION
     Route: 065
  65. TRAMADOL [Suspect]
     Active Substance: TRAMADOL
     Dosage: 2 TABLET, PRN, STRENGTH 100 MG
     Route: 065
  66. CITALOPRAM [Suspect]
     Active Substance: CITALOPRAM HYDROBROMIDE
     Indication: Depression
     Dosage: 40 MG, QD/1-0-0/DRUG LIST AT THE ADMISSION
     Route: 065
  67. CITALOPRAM [Suspect]
     Active Substance: CITALOPRAM HYDROBROMIDE
     Indication: Product used for unknown indication
     Dosage: 1-0-0
     Route: 065
  68. CITALOPRAM [Suspect]
     Active Substance: CITALOPRAM HYDROBROMIDE
     Dosage: 1-0-0
     Route: 065
  69. CITALOPRAM [Suspect]
     Active Substance: CITALOPRAM HYDROBROMIDE
     Dosage: 40 MG, DAILY (1-0-0)
     Route: 065
  70. CITALOPRAM [Suspect]
     Active Substance: CITALOPRAM HYDROBROMIDE
     Dosage: 40 MG, QD/1-0-0/DRUG LIST AT THE ADMISSION
     Route: 065
  71. ALLOPURINOL [Suspect]
     Active Substance: ALLOPURINOL
     Indication: Product used for unknown indication
     Dosage: 100 MG, QD/1-0-0
     Route: 065
  72. ALLOPURINOL [Suspect]
     Active Substance: ALLOPURINOL
     Dosage: 100 MG, QD/1-0-0
     Route: 065
  73. ALLOPURINOL [Suspect]
     Active Substance: ALLOPURINOL
     Dosage: 1-0-0
     Route: 065
  74. ALLOPURINOL [Suspect]
     Active Substance: ALLOPURINOL
     Dosage: 1-0-0
     Route: 065
  75. ALLOPURINOL [Suspect]
     Active Substance: ALLOPURINOL
     Dosage: 100 MG, DAILY (DOSING 1-0-0)
     Route: 065
  76. HYDROCHLOROTHIAZIDE [Suspect]
     Active Substance: HYDROCHLOROTHIAZIDE
     Indication: Product used for unknown indication
     Dosage: 25 MG, QD/1-0-0
     Route: 065
  77. HYDROCHLOROTHIAZIDE [Suspect]
     Active Substance: HYDROCHLOROTHIAZIDE
     Dosage: 1-0-0
     Route: 065
  78. HYDROCHLOROTHIAZIDE [Suspect]
     Active Substance: HYDROCHLOROTHIAZIDE
     Dosage: 1-0-0
     Route: 065
  79. HYDROCHLOROTHIAZIDE [Suspect]
     Active Substance: HYDROCHLOROTHIAZIDE
     Dosage: 25 MG, DAILY (1-0-0)
     Route: 065
  80. NIKETHAMIDE [Suspect]
     Active Substance: NIKETHAMIDE
     Indication: Product used for unknown indication
     Dosage: UNK, 1,5 PLUS 125 MG, AD HOC?NIKETHAMIDE PLUS GLUCOSE
     Route: 065
  81. NIKETHAMIDE [Suspect]
     Active Substance: NIKETHAMIDE
     Dosage: AS NECESSARY
     Route: 065
  82. NIKETHAMIDE [Suspect]
     Active Substance: NIKETHAMIDE
     Dosage: GLUCOSE STRENGTH: 1.5 MG ?NIKETHAMIDE STRENGTH: 125 MG
     Route: 065
  83. NIKETHAMIDE [Suspect]
     Active Substance: NIKETHAMIDE
     Dosage: UNK, 1, 5 PLUS 125 MG, AS NEEDED
     Route: 065
  84. ZOLPIDEM [Suspect]
     Active Substance: ZOLPIDEM TARTRATE
     Indication: Product used for unknown indication
     Dosage: 100 MG, QD/0-0-1
     Route: 065
  85. ZOLPIDEM [Suspect]
     Active Substance: ZOLPIDEM TARTRATE
     Dosage: 0-0-1
     Route: 065
  86. ZOLPIDEM [Suspect]
     Active Substance: ZOLPIDEM TARTRATE
     Dosage: 0-0-1
     Route: 065
  87. ZOLPIDEM [Suspect]
     Active Substance: ZOLPIDEM TARTRATE
     Dosage: 10 MG, DAILY (0-0-1)
     Route: 065
  88. ZOLPIDEM [Suspect]
     Active Substance: ZOLPIDEM TARTRATE
     Dosage: 10 MG, QD (0-0-1)
     Route: 065
  89. FUROSEMIDE [Suspect]
     Active Substance: FUROSEMIDE
     Indication: Product used for unknown indication
     Dosage: 3 DF/EVERY 2 DAYS
     Route: 065
  90. FUROSEMIDE [Suspect]
     Active Substance: FUROSEMIDE
     Route: 065
  91. FUROSEMIDE [Suspect]
     Active Substance: FUROSEMIDE
     Dosage: 3 TABLETS EVERY 2 DAYS
     Route: 065
  92. FUROSEMIDE [Suspect]
     Active Substance: FUROSEMIDE
     Dosage: 40 MG, TID (3/DAY)
     Route: 065
  93. POTASSIUM CHLORIDE [Suspect]
     Active Substance: POTASSIUM CHLORIDE
     Indication: Product used for unknown indication
     Dosage: 1 DF EVERY 2 DAYS/1 DF EVERY 2 DAYS/391 MG K PLUS
     Route: 065
  94. POTASSIUM CHLORIDE [Suspect]
     Active Substance: POTASSIUM CHLORIDE
     Dosage: 1 TABLET (391 K PLUS) EVERY 2 DAYS
     Route: 065
  95. POTASSIUM CHLORIDE [Suspect]
     Active Substance: POTASSIUM CHLORIDE
     Dosage: 1 TABLET EVERY OTHER DAY
     Route: 065
  96. POTASSIUM CHLORIDE [Suspect]
     Active Substance: POTASSIUM CHLORIDE
     Dosage: 1 TABLET, UNK 391 K PLUS (1 TAB EVERY OTHER DAY)
     Route: 065
  97. POTASSIUM CHLORIDE [Suspect]
     Active Substance: POTASSIUM CHLORIDE
     Dosage: 1 DF EVERY 2 DAYS/391 MG K PLUS
     Route: 065
  98. DABIGATRAN [Suspect]
     Active Substance: DABIGATRAN
     Indication: Product used for unknown indication
     Dosage: 110 MG, BID/DRUG LIST AFTER MODIFICATION
     Route: 065
  99. DABIGATRAN [Suspect]
     Active Substance: DABIGATRAN
     Dosage: 110 MG, BID/DRUG LIST AT THE ADMISSION
     Route: 065
  100. DABIGATRAN [Suspect]
     Active Substance: DABIGATRAN
     Dosage: 1-0-1
     Route: 065
  101. DABIGATRAN [Suspect]
     Active Substance: DABIGATRAN
     Dosage: 1-0-1
     Route: 065
  102. DABIGATRAN [Suspect]
     Active Substance: DABIGATRAN
     Dosage: 110 MG, BID (1-0-1)
     Route: 065
  103. DABIGATRAN [Suspect]
     Active Substance: DABIGATRAN
     Dosage: 110 MG, BID/DRUG LIST AT THE ADMISSION
     Route: 065
  104. DABIGATRAN [Suspect]
     Active Substance: DABIGATRAN
     Dosage: 110 MG, BID/DRUG LIST AFTER MODIFICATION
     Route: 065
  105. ATORVASTATIN [Suspect]
     Active Substance: ATORVASTATIN
     Indication: Product used for unknown indication
     Dosage: 20 MG, QD/0-0-1
     Route: 065
  106. ATORVASTATIN [Suspect]
     Active Substance: ATORVASTATIN
     Dosage: 0-0-1
     Route: 065
  107. ATORVASTATIN [Suspect]
     Active Substance: ATORVASTATIN
     Dosage: 0-0-1
     Route: 065
  108. ATORVASTATIN [Suspect]
     Active Substance: ATORVASTATIN
     Dosage: 20 MG, DAILY (DOSING 0-0-1)
     Route: 065
  109. QUETIAPINE [Concomitant]
     Active Substance: QUETIAPINE
     Indication: Product used for unknown indication
     Dosage: 25 MG, QD
     Route: 065
  110. QUETIAPINE [Concomitant]
     Active Substance: QUETIAPINE
     Indication: Product used for unknown indication
  111. METFORMIN [Concomitant]
     Active Substance: METFORMIN HYDROCHLORIDE
     Indication: Type 2 diabetes mellitus
     Dosage: UNK
  112. TORSEMIDE [Concomitant]
     Active Substance: TORSEMIDE
     Indication: Product used for unknown indication
     Dosage: 5 MG, QD/1-0-0
     Route: 065
  113. TORSEMIDE [Concomitant]
     Active Substance: TORSEMIDE
     Indication: Product used for unknown indication
     Dosage: 5 MG, QD
  114. VORTIOXETINE [Concomitant]
     Active Substance: VORTIOXETINE
     Indication: Product used for unknown indication
     Dosage: 10 MG, QD/0-0-1
     Route: 065

REACTIONS (23)
  - Osteoporosis [Unknown]
  - Dementia [Unknown]
  - Parkinsonism [Unknown]
  - Hypoglycaemia [Unknown]
  - Fall [Unknown]
  - Syncope [Unknown]
  - Mobility decreased [Unknown]
  - Cognitive disorder [Unknown]
  - Diabetes mellitus inadequate control [Unknown]
  - Drug dependence [Unknown]
  - Hyponatraemia [Unknown]
  - Depression [Unknown]
  - Initial insomnia [Unknown]
  - Constipation [Unknown]
  - Nausea [Unknown]
  - Arthralgia [Unknown]
  - Abdominal pain upper [Unknown]
  - Cognitive disorder [Unknown]
  - Drug dependence [Unknown]
  - Dizziness [Unknown]
  - Blood pressure decreased [Unknown]
  - Pruritus [Unknown]
  - Hypotension [Unknown]
